FAERS Safety Report 9045039 (Version 2)
Quarter: 2013Q2

REPORT INFORMATION
  Report Type: Spontaneous
  Country: BR (occurrence: BR)
  Receive Date: 20130130
  Receipt Date: 20130416
  Transmission Date: 20140414
  Serious: Yes (Death, Hospitalization, Other)
  Sender: FDA-Public Use
  Company Number: PHHY2013BR005583

PATIENT
  Sex: Female

DRUGS (2)
  1. GILENYA [Suspect]
     Indication: MULTIPLE SCLEROSIS
     Dosage: 0.5 MG, QD
     Route: 048
     Dates: start: 201207
  2. BOTOX [Concomitant]
     Indication: PAIN

REACTIONS (6)
  - Pulmonary embolism [Fatal]
  - Pulmonary artery thrombosis [Unknown]
  - Urinary tract infection [Unknown]
  - Pyuria [Unknown]
  - Multiple sclerosis relapse [Unknown]
  - Dyspnoea [Unknown]
